FAERS Safety Report 7980026-1 (Version None)
Quarter: 2011Q4

REPORT INFORMATION
  Report Type: 
  Country: None (occurrence: None)
  Receive Date: 20111205
  Receipt Date: 20111111
  Transmission Date: 20120403
  Serious: Yes (Hospitalization)
  Sender: FDA-Public Use
  Company Number: PHHY2011IT099809

PATIENT
  Age: 83 Year
  Sex: Male

DRUGS (6)
  1. EN (DELORAZEPAM) (EN (DELORAZEPAM)) 1 MG/ML [Suspect]
     Indication: INTENTIONAL OVERDOSE
     Dosage: 30 DRP; ORAL
     Route: 048
     Dates: start: 20111104, end: 20111104
  2. EN (DELORAZEPAM) (EN (DELORAZEPAM)) 1 MG/ML [Suspect]
     Indication: INSOMNIA
     Dosage: 30 DRP; ORAL
     Route: 048
     Dates: start: 20111104, end: 20111104
  3. VALDOXAN (AGOMELATINE) 25 NG [Suspect]
     Indication: INTENTIONAL OVERDOSE
     Dosage: 25 NG, ONE POSOLOGICAL UNIT ORAL
     Route: 048
     Dates: start: 20111104, end: 20111104
  4. EN (DELORAZEPAM) (EN (DELORAZEPAM)) 1 MG/ML [Suspect]
     Indication: INSOMNIA
     Dosage: 15 DRP
  5. EN (DELORAZEPAM) (EN (DELORAZEPAM)) 1 MG/ML [Suspect]
     Indication: INTENTIONAL OVERDOSE
     Dosage: 15 DRP
  6. TIZANIDINE HYDROCHLORIDE [Suspect]
     Indication: INTENTIONAL OVERDOSE
     Dosage: DOSAGE OF 3 POSOLOGIC UNITS
     Dates: start: 20111104, end: 20111104

REACTIONS (7)
  - SOPOR [None]
  - DRY MOUTH [None]
  - MULTIPLE DRUG OVERDOSE INTENTIONAL [None]
  - BRADYPHRENIA [None]
  - HYPOTENSION [None]
  - BRADYKINESIA [None]
  - BRADYCARDIA [None]
